FAERS Safety Report 5166928-2 (Version None)
Quarter: 2006Q4

REPORT INFORMATION
  Report Type: 
  Country: None (occurrence: None)
  Receive Date: 20061207
  Receipt Date: 20061120
  Transmission Date: 20070319
  Serious: Yes (Other)
  Sender: FDA-Public Use
  Company Number: US-ELI_LILLY_AND_COMPANY-US200611004014

PATIENT
  Age: 84 Year
  Sex: Female

DRUGS (8)
  1. FORTEO [Suspect]
     Indication: OSTEOPOROSIS
     Dosage: UNK, UNK
     Dates: start: 20041119
  2. LEVOTHYROXINE SODIUM [Concomitant]
     Dosage: 150 MG, DAILY (1/D)
  3. HYDROCHLORIC ACID [Concomitant]
     Dosage: 25 MG, DAILY (1/D)
  4. LISINOPRIL [Concomitant]
     Dosage: 20 MG, 2/D
  5. HYDROCODONE BITARTRATE + ACETAMINOPHEN [Concomitant]
     Indication: PAIN
     Dosage: UNK, 3/D
  6. SUPER B [Concomitant]
  7. VITAMIN B-12 [Concomitant]
  8. FERROUS SULFATE TAB [Concomitant]

REACTIONS (2)
  - ANAEMIA [None]
  - MULTIPLE MYELOMA [None]
